FAERS Safety Report 24956620 (Version 1)
Quarter: 2025Q1

REPORT INFORMATION
  Report Type: Spontaneous
  Country: TR (occurrence: TR)
  Receive Date: 20250211
  Receipt Date: 20250211
  Transmission Date: 20250409
  Serious: Yes (Hospitalization, Other)
  Sender: SANDOZ
  Company Number: TR-SANDOZ-SDZ2025TR007575

PATIENT
  Age: 70 Year
  Sex: Male

DRUGS (1)
  1. METHOTREXATE [Suspect]
     Active Substance: METHOTREXATE
     Indication: Rheumatoid arthritis
     Dosage: 2.5 MG,3X2 DAILY
     Route: 065

REACTIONS (4)
  - Wound [Recovered/Resolved]
  - Malaise [Recovered/Resolved]
  - Balance disorder [Unknown]
  - Inappropriate schedule of product administration [Unknown]
